FAERS Safety Report 19792824 (Version 2)
Quarter: 2021Q3

REPORT INFORMATION
  Report Type: Spontaneous
  Country: SG (occurrence: SG)
  Receive Date: 20210906
  Receipt Date: 20210915
  Transmission Date: 20211014
  Serious: Yes (Other)
  Sender: FDA-Public Use
  Company Number: SG-SA-2021SA291176

PATIENT
  Age: 71 Year
  Sex: Male
  Weight: 84 kg

DRUGS (11)
  1. CALCIUM;VITAMIN D [Concomitant]
     Active Substance: CALCIUM\VITAMIN D
     Dosage: 2 DF, QD
  2. BISOPROLOL [Concomitant]
     Active Substance: BISOPROLOL
     Dosage: 1.25 MG, QD
  3. PLAVIX [Concomitant]
     Active Substance: CLOPIDOGREL BISULFATE
     Dosage: UNK
     Dates: start: 20210709, end: 20210710
  4. CLEXANE [Suspect]
     Active Substance: ENOXAPARIN SODIUM
     Dosage: 80 MG, Q12H
     Dates: start: 20210710
  5. OMEPRAZOLE. [Concomitant]
     Active Substance: OMEPRAZOLE
     Dosage: 20 MG, QD
  6. LISINOPRIL. [Concomitant]
     Active Substance: LISINOPRIL
     Dosage: 20 MG, QD
  7. ATORVASTATIN [Concomitant]
     Active Substance: ATORVASTATIN
     Dosage: 40 MG, QD
  8. AMLODIPINE [Concomitant]
     Active Substance: AMLODIPINE BESYLATE
     Dosage: 5 MG, QD
  9. PANADOL [Concomitant]
     Active Substance: ACETAMINOPHEN
     Dosage: 1 G, PRN
  10. MORPHINE [Concomitant]
     Active Substance: MORPHINE
     Dosage: 2.5 MG, PRN
  11. ASPIRIN [ACETYLSALICYLIC ACID] [Concomitant]
     Active Substance: ASPIRIN
     Dosage: 100 MG, QD

REACTIONS (12)
  - Hypotension [Unknown]
  - Blood lactic acid increased [Recovered/Resolved]
  - Haemoglobin decreased [Unknown]
  - Abdominal pain [Unknown]
  - Acute kidney injury [Unknown]
  - Pain [Unknown]
  - Fat tissue increased [Unknown]
  - Injury [Unknown]
  - Hypovolaemic shock [Unknown]
  - Abdominal wall haematoma [Unknown]
  - Abdominal mass [Unknown]
  - Arterial haemorrhage [Unknown]

NARRATIVE: CASE EVENT DATE: 20210713
